FAERS Safety Report 16693713 (Version 2)
Quarter: 2019Q3

REPORT INFORMATION
  Report Type: Spontaneous
  Country: CO (occurrence: CO)
  Receive Date: 20190812
  Receipt Date: 20190916
  Transmission Date: 20191004
  Serious: Yes (Hospitalization, Other)
  Sender: FDA-Public Use
  Company Number: CO-JNJFOC-20190618419

PATIENT
  Age: 46 Year
  Sex: Male

DRUGS (6)
  1. ADEMPAS [Suspect]
     Active Substance: RIOCIGUAT
     Indication: PULMONARY ARTERIAL HYPERTENSION
     Dosage: 2.5 MG, Q8HR
     Route: 048
     Dates: start: 20180619
  2. BOSENTAN. [Concomitant]
     Active Substance: BOSENTAN
     Indication: PULMONARY HYPERTENSION
     Dosage: UNK
     Route: 065
  3. RIVAROXABAN [Suspect]
     Active Substance: RIVAROXABAN
     Route: 048
     Dates: start: 20190715
  4. LOSARTAN. [Concomitant]
     Active Substance: LOSARTAN
     Indication: HYPERTENSION
     Dosage: UNK
     Route: 065
  5. CARVEDILOL. [Concomitant]
     Active Substance: CARVEDILOL
     Dosage: UNK
     Route: 065
  6. RIVAROXABAN [Suspect]
     Active Substance: RIVAROXABAN
     Indication: PRODUCT USED FOR UNKNOWN INDICATION
     Dosage: UNK
     Route: 048

REACTIONS (10)
  - Gingival bleeding [Unknown]
  - Headache [Not Recovered/Not Resolved]
  - Dengue fever [Recovering/Resolving]
  - Haemoptysis [Not Recovered/Not Resolved]
  - Haemoptysis [Not Recovered/Not Resolved]
  - Platelet count decreased [Unknown]
  - Product prescribing error [Unknown]
  - Haemoptysis [Unknown]
  - Productive cough [Not Recovered/Not Resolved]
  - Pain [Not Recovered/Not Resolved]

NARRATIVE: CASE EVENT DATE: 201906
